FAERS Safety Report 11115040 (Version 3)
Quarter: 2015Q3

REPORT INFORMATION
  Report Type: Spontaneous
  Country: US (occurrence: US)
  Receive Date: 20150515
  Receipt Date: 20150706
  Transmission Date: 20151125
  Serious: Yes (Other)
  Sender: FDA-Public Use
  Company Number: US-BAYER-2015-219930

PATIENT
  Age: 16 Year
  Sex: Female
  Weight: 52.15 kg

DRUGS (1)
  1. MIRENA [Suspect]
     Active Substance: LEVONORGESTREL
     Indication: CONTRACEPTION
     Dosage: 20 MCG/24HR, CONT
     Route: 015
     Dates: start: 20140617, end: 20150514

REACTIONS (5)
  - Vaginal haemorrhage [None]
  - Device difficult to use [None]
  - Abdominal pain lower [None]
  - Pelvic pain [None]
  - Device expulsion [None]

NARRATIVE: CASE EVENT DATE: 20150504
